FAERS Safety Report 15357593 (Version 1)
Quarter: 2018Q3

REPORT INFORMATION
  Report Type: Spontaneous
  Country: US (occurrence: US)
  Receive Date: 20180906
  Receipt Date: 20180906
  Transmission Date: 20181010
  Serious: No
  Sender: FDA-Public Use
  Company Number: US-PTC THERAPEUTICS, INC.-US-2018PTC000658

PATIENT

DRUGS (1)
  1. EMFLAZA [Suspect]
     Active Substance: DEFLAZACORT
     Indication: MUSCULAR DYSTROPHY
     Dosage: 30 MG, UNK
     Dates: start: 20180315

REACTIONS (4)
  - Hunger [Unknown]
  - Hot flush [Unknown]
  - Mood altered [Unknown]
  - Weight increased [Unknown]

NARRATIVE: CASE EVENT DATE: 20180607
